FAERS Safety Report 6417635-7 (Version None)
Quarter: 2009Q4

REPORT INFORMATION
  Report Type: 
  Country: None (occurrence: None)
  Receive Date: 20091028
  Receipt Date: 20091026
  Transmission Date: 20100525
  Serious: Yes (Hospitalization, Disabling)
  Sender: FDA-Public Use
  Company Number: US-TEVA-211423USA

PATIENT
  Sex: Female

DRUGS (9)
  1. GLYBURIDE AND METFORMIN HYDROCHLORIDE [Suspect]
     Indication: DIABETES MELLITUS
     Route: 048
     Dates: start: 20090316, end: 20091003
  2. PIOGLITAZONE [Concomitant]
  3. LEVOTHYROXINE SODIUM [Concomitant]
  4. METOPROLOL [Concomitant]
     Indication: CARDIAC DISORDER
  5. CYANOCOBALAMIN-TANNIN COMPLEX [Concomitant]
  6. ACETYLSALICYLIC ACID [Concomitant]
  7. ISRADIPINE [Concomitant]
  8. INSULIN [Concomitant]
  9. INSULIN DETEMIR [Concomitant]

REACTIONS (17)
  - AREFLEXIA [None]
  - BALANCE DISORDER [None]
  - CONSTIPATION [None]
  - DIABETIC AMYOTROPHY [None]
  - DYSPHAGIA [None]
  - DYSPNOEA [None]
  - DYSSTASIA [None]
  - GAIT DISTURBANCE [None]
  - HUNGER [None]
  - HYPOAESTHESIA [None]
  - MOVEMENT DISORDER [None]
  - MUSCLE CONTRACTIONS INVOLUNTARY [None]
  - MUSCLE TIGHTNESS [None]
  - PAIN OF SKIN [None]
  - POLYNEUROPATHY [None]
  - URINE OUTPUT DECREASED [None]
  - WEIGHT INCREASED [None]
